FAERS Safety Report 4514637-2 (Version None)
Quarter: 2004Q4

REPORT INFORMATION
  Report Type: 
  Country: None (occurrence: None)
  Receive Date: 20040927
  Receipt Date: 20040303
  Transmission Date: 20050328
  Serious: Yes (Hospitalization)
  Sender: FDA-Public Use
  Company Number: US068103

PATIENT
  Sex: Female

DRUGS (3)
  1. NEULASTA [Suspect]
     Indication: CHEMOTHERAPY
  2. EPIRUBICIN [Suspect]
     Dosage: 100 MG/M2
     Dates: start: 20040218, end: 20040219
  3. IFOSFAMIDE [Concomitant]
     Dates: start: 20040218, end: 20040220

REACTIONS (1)
  - FEBRILE NEUTROPENIA [None]
